FAERS Safety Report 10157872 (Version 1)
Quarter: 2014Q2

REPORT INFORMATION
  Report Type: Spontaneous
  Country: DE (occurrence: DE)
  Receive Date: 20140507
  Receipt Date: 20140507
  Transmission Date: 20141212
  Serious: Yes (Other)
  Sender: FDA-Public Use
  Company Number: PHHY2014DE053831

PATIENT
  Sex: Male

DRUGS (7)
  1. LEPONEX [Suspect]
     Dosage: 200 MG, UNK
     Dates: start: 199912
  2. LEPONEX [Suspect]
     Dosage: 200 MG, UNK
     Dates: start: 200001
  3. LEPONEX [Suspect]
     Dosage: 2 (50 MG) BID
  4. ZYPREXA [Concomitant]
     Dosage: 1 DF, QD
  5. MARCUMAR [Concomitant]
     Dosage: UNK
  6. BETA BLOCKING AGENTS [Concomitant]
     Dosage: UNK
  7. IBUPROFEN [Concomitant]
     Dosage: UNK

REACTIONS (4)
  - Bacterial infection [Unknown]
  - Back pain [Unknown]
  - Hypotension [Recovered/Resolved]
  - C-reactive protein increased [Unknown]
